FAERS Safety Report 8146943 (Version 4)
Quarter: 2013Q2

REPORT INFORMATION
  Report Type: Spontaneous
  Country: US (occurrence: US)
  Receive Date: 20110921
  Receipt Date: 20130620
  Transmission Date: 20140414
  Serious: Yes (Death)
  Sender: FDA-Public Use
  Company Number: US-ASTRAZENECA-2011SE54727

PATIENT
  Age: 81 Year
  Sex: Male
  Weight: 77.1 kg

DRUGS (1)
  1. MERREM [Suspect]
     Indication: STAPHYLOCOCCAL INFECTION
     Route: 042

REACTIONS (2)
  - Cardiac arrest [Fatal]
  - Activities of daily living impaired [Unknown]
